FAERS Safety Report 7439060-2 (Version None)
Quarter: 2011Q2

REPORT INFORMATION
  Report Type: 
  Country: None (occurrence: None)
  Receive Date: 20110427
  Receipt Date: 20110418
  Transmission Date: 20111010
  Serious: No
  Sender: FDA-Public Use
  Company Number: US-BIOGENIDEC-2011BI014812

PATIENT
  Sex: Female

DRUGS (2)
  1. AVONEX [Suspect]
     Indication: MULTIPLE SCLEROSIS
     Route: 030
     Dates: start: 20030101
  2. AVONEX [Suspect]
     Route: 030
     Dates: start: 19990815

REACTIONS (6)
  - HYPERTENSION [None]
  - VISUAL IMPAIRMENT [None]
  - PHOTOPHOBIA [None]
  - FALL [None]
  - URINARY TRACT INFECTION [None]
  - TEMPERATURE INTOLERANCE [None]
